FAERS Safety Report 11064572 (Version 1)
Quarter: 2015Q2

REPORT INFORMATION
  Report Type: Spontaneous
  Country: IT (occurrence: IT)
  Receive Date: 20150424
  Receipt Date: 20150424
  Transmission Date: 20150821
  Serious: Yes (Other)
  Sender: FDA-Public Use
  Company Number: IT-MYLANLABS-2012S1014697

PATIENT

DRUGS (3)
  1. LEUPRORELIN /00726902/ [Suspect]
     Active Substance: LEUPROLIDE ACETATE
     Indication: LYMPHANGIOLEIOMYOMATOSIS
     Dosage: 3.75 MG, 28D CYCLE
     Route: 030
  2. LETROZOLE. [Suspect]
     Active Substance: LETROZOLE
     Indication: LYMPHANGIOLEIOMYOMATOSIS
     Dosage: 2.5 MG, QD
     Route: 048
  3. TRIPTORELIN [Suspect]
     Active Substance: TRIPTORELIN
     Indication: LYMPHANGIOLEIOMYOMATOSIS
     Dosage: UNK

REACTIONS (2)
  - Bone density decreased [Unknown]
  - Secondary hypogonadism [Unknown]
